FAERS Safety Report 5815717-1 (Version None)
Quarter: 2008Q3

REPORT INFORMATION
  Report Type: 
  Country: None (occurrence: None)
  Receive Date: 20080721
  Receipt Date: 20080716
  Transmission Date: 20090109
  Serious: Yes (Hospitalization)
  Sender: FDA-Public Use
  Company Number: FR-BRISTOL-MYERS SQUIBB COMPANY-14267520

PATIENT
  Age: 51 Year
  Sex: Female

DRUGS (8)
  1. ORENCIA [Suspect]
     Indication: RHEUMATOID ARTHRITIS
     Dates: start: 20051130
  2. METHOTREXATE [Concomitant]
  3. FOLIC ACID [Concomitant]
  4. DOLIPRANE [Concomitant]
  5. LEVOTHYROX [Concomitant]
  6. RAMIPRIL [Concomitant]
  7. DAIVOBET [Concomitant]
  8. DESLORATADINE [Concomitant]

REACTIONS (3)
  - DEPRESSION [None]
  - MAJOR DEPRESSION [None]
  - MEMORY IMPAIRMENT [None]
